FAERS Safety Report 20152215 (Version 1)
Quarter: 2021Q4

REPORT INFORMATION
  Report Type: Spontaneous
  Country: US (occurrence: US)
  Receive Date: 20211206
  Receipt Date: 20211206
  Transmission Date: 20220304
  Serious: Yes (Hospitalization)
  Sender: FDA-Public Use
  Company Number: US-PFIZER INC-202101664236

PATIENT
  Age: 85 Year
  Sex: Male

DRUGS (1)
  1. CLINDAMYCIN HYDROCHLORIDE [Suspect]
     Active Substance: CLINDAMYCIN HYDROCHLORIDE
     Indication: Prophylaxis
     Dosage: UNK (INGESTION)
     Route: 048

REACTIONS (3)
  - Dysphagia [Unknown]
  - Odynophagia [Unknown]
  - Pharyngo-oesophageal diverticulum [Unknown]
